FAERS Safety Report 8216795-5 (Version None)
Quarter: 2012Q1

REPORT INFORMATION
  Report Type: 
  Country: None (occurrence: None)
  Receive Date: 20120316
  Receipt Date: 20120306
  Transmission Date: 20120608
  Serious: Yes (Other)
  Sender: FDA-Public Use
  Company Number: US-MERCK-1203USA01016

PATIENT
  Age: 60 Year
  Sex: Female
  Weight: 95 kg

DRUGS (14)
  1. ELAVIL [Suspect]
     Indication: MUSCLE SPASMS
     Route: 048
  2. LYRICA [Suspect]
     Route: 048
     Dates: start: 20050101, end: 20100701
  3. PROZAC [Concomitant]
     Indication: DEPRESSION
     Route: 048
  4. MEDROL [Suspect]
     Route: 048
     Dates: start: 20101101, end: 20120212
  5. OXYCODONE [Concomitant]
     Indication: NEURALGIA
     Route: 048
  6. MEDROL [Suspect]
     Route: 048
     Dates: start: 20120213
  7. SINGULAIR [Suspect]
     Indication: ASTHMA
     Route: 048
  8. MEDROL [Suspect]
     Indication: INFLAMMATORY PAIN
     Route: 048
     Dates: start: 20100101, end: 20101101
  9. LYRICA [Suspect]
     Indication: NEURALGIA
     Route: 048
     Dates: start: 20100701
  10. OMEPRAZOLE [Concomitant]
     Indication: GASTROOESOPHAGEAL REFLUX DISEASE
     Route: 065
  11. PENTASA [Suspect]
     Indication: CROHN'S DISEASE
     Route: 048
  12. TAXOL [Concomitant]
     Indication: DEPRESSION
     Route: 065
  13. PENTASA [Suspect]
     Route: 048
  14. ELAVIL [Suspect]
     Route: 048

REACTIONS (13)
  - AGITATION [None]
  - DRUG INTERACTION [None]
  - PAIN IN EXTREMITY [None]
  - DYSPNOEA [None]
  - AGGRESSION [None]
  - HYPERSENSITIVITY [None]
  - ECCHYMOSIS [None]
  - DRY MOUTH [None]
  - AFFECTIVE DISORDER [None]
  - IRRITABILITY [None]
  - OEDEMA PERIPHERAL [None]
  - ERYTHEMA [None]
  - WEIGHT INCREASED [None]
